FAERS Safety Report 9639071 (Version 2)
Quarter: 2013Q4

REPORT INFORMATION
  Report Type: Report from Study
  Country: US (occurrence: US)
  Receive Date: 20131022
  Receipt Date: 20131022
  Transmission Date: 20140711
  Serious: No
  Sender: FDA-Public Use
  Company Number: US-ABBVIE-12P-163-0920310-00

PATIENT
  Age: 36 Year
  Sex: Female

DRUGS (2)
  1. LUPRON DEPOT 7.5 MG [Suspect]
     Indication: UTERINE LEIOMYOMA
     Route: 058
     Dates: start: 20110930, end: 201203
  2. SHORT ACTING INSULIN [Concomitant]
     Indication: DIABETES MELLITUS
     Route: 058
     Dates: start: 2006

REACTIONS (10)
  - Nightmare [Recovering/Resolving]
  - Blood glucose increased [Unknown]
  - Glycosylated haemoglobin increased [Recovering/Resolving]
  - Renal impairment [Unknown]
  - Breast enlargement [Not Recovered/Not Resolved]
  - Night sweats [Recovering/Resolving]
  - Breast tenderness [Not Recovered/Not Resolved]
  - Breast pain [Recovering/Resolving]
  - Erythema [Not Recovered/Not Resolved]
  - Breast mass [Recovered/Resolved]
